FAERS Safety Report 14819464 (Version 1)
Quarter: 2018Q2

REPORT INFORMATION
  Report Type: Spontaneous
  Country: US (occurrence: US)
  Receive Date: 20180427
  Receipt Date: 20180427
  Transmission Date: 20180711
  Serious: No
  Sender: FDA-Public Use
  Company Number: US-BAYER-2018-072428

PATIENT
  Age: 80 Year
  Sex: Male

DRUGS (2)
  1. DULCOLAX (DOCUSATE SODIUM) [Concomitant]
     Active Substance: DOCUSATE SODIUM
     Dosage: 3 DF, UNK
     Dates: start: 20180411
  2. MIRALAX [Suspect]
     Active Substance: POLYETHYLENE GLYCOL 3350
     Indication: GASTROINTESTINAL DISORDER
     Dosage: 1 DF, UNK
     Route: 048

REACTIONS (10)
  - Blood electrolytes decreased [Unknown]
  - Product use issue [Unknown]
  - Product prescribing issue [Unknown]
  - Asthenia [Unknown]
  - Toxicity to various agents [Unknown]
  - Gait disturbance [Unknown]
  - Dyspepsia [Unknown]
  - Drug ineffective [Unknown]
  - Constipation [Unknown]
  - Dizziness [Unknown]
